FAERS Safety Report 7248769-5 (Version None)
Quarter: 2011Q1

REPORT INFORMATION
  Report Type: 
  Country: None (occurrence: None)
  Receive Date: 20110128
  Receipt Date: 20110120
  Transmission Date: 20110831
  Serious: Yes (Other)
  Sender: FDA-Public Use
  Company Number: GB-CEPHALON-2011000368

PATIENT
  Sex: Female

DRUGS (1)
  1. PROVIGIL [Suspect]
     Indication: MYOTONIC DYSTROPHY
     Dates: start: 20010101

REACTIONS (3)
  - CARDIOMYOPATHY [None]
  - ATRIAL FIBRILLATION [None]
  - PULMONARY THROMBOSIS [None]
